FAERS Safety Report 20444588 (Version 1)
Quarter: 2022Q1

REPORT INFORMATION
  Report Type: Spontaneous
  Country: DK (occurrence: DK)
  Receive Date: 20220208
  Receipt Date: 20220208
  Transmission Date: 20220423
  Serious: Yes (Death)
  Sender: FDA-Public Use
  Company Number: None

PATIENT
  Age: 73 Year
  Sex: Female

DRUGS (3)
  1. CLOPIDOGREL [Suspect]
     Active Substance: CLOPIDOGREL BISULFATE
     Indication: Thrombosis prophylaxis
     Dosage: 75 MG, DURING A KAG PROCEDURE THE PATIENT WAS LOADED WITH UNKNOWN DOSE. STRENGTH: 75 MG
     Route: 048
     Dates: start: 20200724
  2. ELIQUIS [Suspect]
     Active Substance: APIXABAN
     Indication: Thrombosis prophylaxis
     Dosage: 10 MG, DOSED 2.5MG DAILY, HOWEVER DOSE INCREASED TO 5 MG TWICE A DAY IN EARLY JUNE 2020 . STRENGTH:
     Route: 048
     Dates: start: 20200505
  3. ASPIRIN\MAGNESIUM OXIDE [Suspect]
     Active Substance: ASPIRIN\MAGNESIUM OXIDE
     Indication: Thrombosis prophylaxis
     Dosage: DURING A KAG PROCEDURE THE PATIENT WAS LOADED WITH UNKNOWN DOSE
     Route: 065
     Dates: start: 20200724, end: 20200724

REACTIONS (3)
  - Nausea [Fatal]
  - Headache [Fatal]
  - Cerebral haemorrhage [Fatal]

NARRATIVE: CASE EVENT DATE: 20200724
